FAERS Safety Report 26152627 (Version 1)
Quarter: 2025Q4

REPORT INFORMATION
  Report Type: Report from Study
  Country: KR (occurrence: KR)
  Receive Date: 20251214
  Receipt Date: 20251214
  Transmission Date: 20260117
  Serious: Yes (Hospitalization)
  Sender: ABBVIE
  Company Number: KR-ABBVIE-6584413

PATIENT
  Age: 27 Year
  Sex: Female
  Weight: 48 kg

DRUGS (4)
  1. RINVOQ [Suspect]
     Active Substance: UPADACITINIB
     Indication: Dermatitis atopic
     Dosage: 1 TABLET
     Route: 048
     Dates: start: 20240408
  2. Topisol [Concomitant]
     Indication: Dermatitis atopic
     Dosage: TIME INTERVAL: AS NECESSARY: UNIT DOSE : 1FINGERTIPS?TOPISOL MILK LOTION 0.1% 80G (METHYLPREDNISO...
     Route: 061
     Dates: start: 20240408
  3. DESOWEN [Concomitant]
     Active Substance: DESONIDE
     Indication: Dermatitis atopic
     Dosage: TIME INTERVAL: AS NECESSARY: UNIT DOSE : 1FINGERTIPS?DESOWEN LOTION 0.05% 120ML (DESONIDE)
     Route: 061
     Dates: start: 20240408
  4. ELIDEL [Concomitant]
     Active Substance: PIMECROLIMUS
     Indication: Dermatitis atopic
     Dosage: TIME INTERVAL: AS NECESSARY: UNIT DOSE : 1FINGERTIPS?ELIDEL CREAM 1% 10G (PIMECROLIMUS)
     Route: 061
     Dates: start: 20240408

REACTIONS (1)
  - Diabetes mellitus [Recovered/Resolved]

NARRATIVE: CASE EVENT DATE: 20240506
